FAERS Safety Report 25936222 (Version 1)
Quarter: 2025Q4

REPORT INFORMATION
  Report Type: Spontaneous
  Country: CN (occurrence: CN)
  Receive Date: 20251017
  Receipt Date: 20251017
  Transmission Date: 20260117
  Serious: Yes (Other)
  Sender: MERCK SHARP & DOHME LLC
  Company Number: CN-009507513-2340419

PATIENT
  Age: 18 Year
  Sex: Male
  Weight: 52 kg

DRUGS (1)
  1. IMIPENEM AND CILASTATIN [Suspect]
     Active Substance: CILASTATIN SODIUM\IMIPENEM
     Indication: Abdominal pain
     Dosage: TIME INTERVAL: 0.33333333 DAYS
     Route: 041
     Dates: start: 20250908, end: 20250910

REACTIONS (6)
  - Epilepsy [Recovering/Resolving]
  - Product use in unapproved indication [Unknown]
  - Abdominal pain [Unknown]
  - Blepharospasm [Recovering/Resolving]
  - Seizure [Recovering/Resolving]
  - Muscle rigidity [Recovering/Resolving]

NARRATIVE: CASE EVENT DATE: 20250901
